FAERS Safety Report 4393960-9 (Version None)
Quarter: 2004Q3

REPORT INFORMATION
  Report Type: 
  Country: None (occurrence: None)
  Receive Date: 20040701
  Receipt Date: 20040625
  Transmission Date: 20050211
  Serious: Yes (Death)
  Sender: FDA-Public Use
  Company Number: 2004PK01092

PATIENT
  Age: 64 Year
  Sex: Male

DRUGS (28)
  1. SEROQUEL [Suspect]
     Dosage: 75 MG DAILY PO
     Route: 048
     Dates: start: 20031205, end: 20031205
  2. SEROQUEL [Suspect]
     Dosage: 150 MG DAILY PO
     Route: 048
     Dates: start: 20031206, end: 20031206
  3. SEROQUEL [Suspect]
     Dosage: 300 MG DAILY PO
     Route: 048
     Dates: start: 20031207, end: 20031211
  4. SEROQUEL [Suspect]
     Dosage: 400 MG DAILY PO
     Route: 048
     Dates: start: 20031212, end: 20031212
  5. SEROQUEL [Suspect]
     Dosage: 600 MG DAILY PO
     Route: 048
     Dates: start: 20031213, end: 20031215
  6. SEROQUEL [Suspect]
     Dosage: 700 MG DAILY PO
     Route: 048
     Dates: start: 20031216, end: 20031216
  7. SEROQUEL [Suspect]
     Dosage: 800 MG DAILY PO
     Route: 048
     Dates: start: 20031217, end: 20040105
  8. SEROQUEL [Suspect]
     Dosage: 1000 MG DAILY PO
     Route: 048
     Dates: start: 20040106, end: 20040201
  9. CIATYL-Z [Suspect]
     Dosage: 20-110 MG
     Dates: start: 20031112, end: 20031126
  10. CIATYL-Z [Suspect]
     Dosage: 120 MG DAILY PO
     Route: 048
     Dates: start: 20031127, end: 20031201
  11. CIATYL-Z [Suspect]
     Dosage: 150 MG DAILY PO
     Route: 048
     Dates: start: 20031202, end: 20031202
  12. CIATYL-Z [Suspect]
     Dosage: 160 MG DAILY PO
     Route: 048
     Dates: start: 20031203, end: 20031209
  13. CIATYL-Z [Suspect]
     Dosage: 140 MG DAILY PO
     Route: 048
     Dates: start: 20031210, end: 20031210
  14. CIATYL-Z [Suspect]
     Dosage: 130 MG DAILY PO
     Route: 048
     Dates: start: 20031211, end: 20031218
  15. CIATYL-Z [Suspect]
     Dosage: 140 MG DAILY PO
     Route: 048
     Dates: start: 20031219, end: 20031219
  16. CIATYL-Z [Suspect]
     Dosage: 145 MG DAILY PO
     Route: 048
     Dates: start: 20031220, end: 20031224
  17. CIATYL-Z [Suspect]
     Dosage: 150 MG DAILY PO
     Route: 048
     Dates: start: 20031225, end: 20040115
  18. CIATYL-Z [Suspect]
     Dosage: 155 MG DAILY PO
     Route: 048
     Dates: start: 20040116, end: 20040120
  19. CIATYL-Z [Suspect]
     Dosage: 160 MG DAILY PO
     Route: 048
     Dates: start: 20040121, end: 20040128
  20. CIATYL-Z [Suspect]
     Dosage: 165 MG DAILY PO
     Route: 048
     Dates: start: 20040129, end: 20040201
  21. ERGENYL [Concomitant]
  22. DIAZEPAM [Concomitant]
  23. NEXIUM [Concomitant]
  24. ACETYLCYSTEINE [Concomitant]
  25. MINIRIN [Concomitant]
  26. GLUCOPHAGE [Concomitant]
  27. BIFITERAL [Concomitant]
  28. ENOXAPARIN SODIUM [Concomitant]

REACTIONS (2)
  - MYOCARDIAL INFARCTION [None]
  - SUDDEN CARDIAC DEATH [None]
